FAERS Safety Report 11216291 (Version 1)
Quarter: 2015Q2

REPORT INFORMATION
  Report Type: Spontaneous
  Country: US (occurrence: US)
  Receive Date: 20150624
  Receipt Date: 20150624
  Transmission Date: 20150821
  Serious: Yes (Other)
  Sender: FDA-Public Use
  Company Number: US-ELI_LILLY_AND_COMPANY-US201506006847

PATIENT
  Sex: Female

DRUGS (1)
  1. CYMBALTA [Suspect]
     Active Substance: DULOXETINE HYDROCHLORIDE
     Indication: DEPRESSION
     Dosage: UNK
     Dates: start: 200710, end: 201307

REACTIONS (8)
  - Speech disorder [Unknown]
  - Muscular weakness [Unknown]
  - Drug withdrawal syndrome [Unknown]
  - Headache [Unknown]
  - Amnesia [Unknown]
  - Seizure [Unknown]
  - Hypoaesthesia [Unknown]
  - Nausea [Unknown]
